FAERS Safety Report 8354440-9 (Version None)
Quarter: 2012Q2

REPORT INFORMATION
  Report Type: 
  Country: None (occurrence: None)
  Receive Date: 20120511
  Receipt Date: 20120509
  Transmission Date: 20120825
  Serious: Yes (Death, Hospitalization)
  Sender: FDA-Public Use
  Company Number: CH-ASTRAZENECA-2012SE29757

PATIENT
  Age: 82 Year
  Sex: Male
  Weight: 80 kg

DRUGS (17)
  1. DUTASTERIDE/TAMSULOSIN HYDROCHLORIDE [Concomitant]
     Route: 048
     Dates: end: 20120105
  2. ARTEOPTIC [Concomitant]
     Route: 047
     Dates: end: 20120105
  3. MINOCIN [Interacting]
     Route: 048
     Dates: start: 20111201, end: 20120105
  4. XARELTO [Interacting]
     Route: 048
     Dates: start: 20110101, end: 20120103
  5. NEBIVOLOL HCL [Concomitant]
     Route: 048
     Dates: end: 20120105
  6. NOVALGIN [Concomitant]
     Route: 048
     Dates: end: 20120105
  7. RIMACTANE [Interacting]
     Route: 048
     Dates: start: 20111201, end: 20120103
  8. TORSEMIDE [Suspect]
     Route: 048
     Dates: end: 20110101
  9. MAGNESIOCARD [Concomitant]
     Route: 048
     Dates: end: 20120103
  10. FLUTICASONE PROPIONATE/SALMETEROL [Concomitant]
     Route: 055
     Dates: end: 20120105
  11. HALCION [Concomitant]
     Route: 048
     Dates: end: 20111229
  12. NEURONTIN [Concomitant]
     Route: 048
     Dates: end: 20111229
  13. PLAVIX [Suspect]
     Route: 048
     Dates: end: 20110101
  14. PANTOPRAZOLE [Suspect]
     Route: 048
     Dates: end: 20120105
  15. ASPIRIN [Suspect]
     Route: 048
     Dates: end: 20120105
  16. METAMUCIL-2 [Concomitant]
     Route: 048
     Dates: end: 20111229
  17. ATACAND HCT [Suspect]
     Dosage: 1 DOSAGE FORM,0.5 PER DAY
     Route: 048
     Dates: end: 20111230

REACTIONS (3)
  - LIVER INJURY [None]
  - VOMITING [None]
  - DIARRHOEA [None]
